FAERS Safety Report 7417018-7 (Version None)
Quarter: 2011Q2

REPORT INFORMATION
  Report Type: 
  Country: None (occurrence: None)
  Receive Date: 20110415
  Receipt Date: 20110331
  Transmission Date: 20111010
  Serious: Yes (Hospitalization)
  Sender: FDA-Public Use
  Company Number: FR-CELGENEUS-056-C5013-11032144

PATIENT
  Sex: Male
  Weight: 105 kg

DRUGS (15)
  1. CC-5013\PLACEBO [Suspect]
     Dosage: 25 MILLIGRAM
     Route: 048
     Dates: start: 20110224, end: 20110309
  2. PREDNISONE [Suspect]
     Indication: PROSTATE CANCER
     Dosage: 10 MILLIGRAM
     Route: 065
     Dates: start: 20101202
  3. PREDNISONE [Suspect]
     Dosage: 10 MILLIGRAM
     Route: 065
     Dates: start: 20110224, end: 20110316
  4. MOPRAL [Concomitant]
     Dosage: 1-2 CAPSULES
     Route: 048
     Dates: start: 20110113
  5. CC-5013\PLACEBO [Suspect]
     Indication: PROSTATE CANCER
     Dosage: 25 MILLIGRAM
     Route: 048
     Dates: start: 20101202
  6. ATENOLOL [Concomitant]
     Dosage: 1 DOSAGE FORMS
     Route: 048
  7. DOCETAXEL [Suspect]
     Dosage: 150 MILLIGRAM
     Route: 065
     Dates: start: 20110224, end: 20110224
  8. DECAPEPTYL [Concomitant]
     Indication: PROSTATE CANCER
     Dosage: .125 MILLIGRAM
     Route: 058
     Dates: start: 20040101
  9. ZOMETA [Concomitant]
     Indication: PROSTATE CANCER
     Dosage: .1333 MILLIGRAM
     Route: 051
     Dates: start: 20040101
  10. METFORMIN [Concomitant]
     Route: 048
     Dates: start: 20100504
  11. PRAVASTATIN SODIUM [Concomitant]
     Dosage: 1 DOSAGE FORMS
     Route: 048
  12. GLICLAZIDE [Concomitant]
     Route: 048
     Dates: start: 20100504
  13. DOCETAXEL [Suspect]
     Indication: PROSTATE CANCER
     Dosage: 150 MILLIGRAM
     Route: 065
     Dates: start: 20101202
  14. TOPALGIC [Concomitant]
     Indication: PAIN
     Dosage: 2 DOSAGE FORMS
     Route: 065
     Dates: start: 20110224
  15. GAVISCON [Concomitant]
     Route: 065
     Dates: start: 20110113

REACTIONS (1)
  - DYSKINESIA [None]
